FAERS Safety Report 13571528 (Version 6)
Quarter: 2017Q3

REPORT INFORMATION
  Report Type: Spontaneous
  Country: PR (occurrence: PR)
  Receive Date: 20170523
  Receipt Date: 20170907
  Transmission Date: 20171127
  Serious: Yes (Death, Other)
  Sender: FDA-Public Use
  Company Number: PR-PFIZER INC-2017222669

PATIENT
  Age: 81 Year
  Sex: Female
  Weight: 33.56 kg

DRUGS (5)
  1. FASLODEX [Concomitant]
     Active Substance: FULVESTRANT
     Dosage: UNK
  2. IBRANCE [Suspect]
     Active Substance: PALBOCICLIB
     Dosage: 75 MG, DAILY
     Route: 048
     Dates: start: 20170417
  3. IBRANCE [Suspect]
     Active Substance: PALBOCICLIB
     Indication: BREAST CANCER
     Dosage: 75 MG, CYCLIC (DAILY FOR 21 DAYS ON, THEN 7 OFF)
     Route: 048
     Dates: start: 20170417
  4. ZOLEDRONIC [Concomitant]
     Active Substance: ZOLEDRONIC ACID
     Dosage: UNK
  5. IBRANCE [Suspect]
     Active Substance: PALBOCICLIB
     Dosage: 75 MG, CYCLIC (DAILY FOR 21 DAYS ON, THEN 7 OFF)
     Route: 048
     Dates: start: 20170418

REACTIONS (16)
  - Urinary tract infection [Unknown]
  - Death [Fatal]
  - White blood cell count decreased [Unknown]
  - Drug dose omission [Unknown]
  - Nausea [Unknown]
  - Tremor [Unknown]
  - Weight decreased [Unknown]
  - Limb injury [Unknown]
  - Vomiting [Unknown]
  - Asthenia [Unknown]
  - Abdominal discomfort [Unknown]
  - Haemoglobin decreased [Unknown]
  - Pruritus [Unknown]
  - Decreased appetite [Unknown]
  - Oedema [Unknown]
  - Platelet count decreased [Unknown]

NARRATIVE: CASE EVENT DATE: 20170830
